FAERS Safety Report 5012034-7 (Version None)
Quarter: 2006Q2

REPORT INFORMATION
  Report Type: 
  Country: None (occurrence: None)
  Receive Date: 20060526
  Receipt Date: 20060517
  Transmission Date: 20061013
  Serious: Yes (Hospitalization)
  Sender: FDA-Public Use
  Company Number: CA-GLAXOSMITHKLINE-A0606234A

PATIENT
  Age: 70 Year
  Sex: Female

DRUGS (1)
  1. CEFTIN [Suspect]
     Indication: BRONCHITIS
     Dosage: 250MG TWICE PER DAY
     Route: 065

REACTIONS (5)
  - BURNING SENSATION [None]
  - COUGH [None]
  - ERYTHEMA [None]
  - PRURITUS [None]
  - VIRAL INFECTION [None]
